FAERS Safety Report 6253325-1 (Version None)
Quarter: 2009Q3

REPORT INFORMATION
  Report Type: 
  Country: None (occurrence: None)
  Receive Date: 20090701
  Receipt Date: 20090619
  Transmission Date: 20100115
  Serious: Yes (Hospitalization)
  Sender: FDA-Public Use
  Company Number: US-ROCHE-636238

PATIENT
  Sex: Female
  Weight: 87.5 kg

DRUGS (3)
  1. CAPECITABINE [Suspect]
     Indication: BREAST CANCER
     Route: 048
     Dates: start: 20090425
  2. CAPECITABINE [Suspect]
     Dosage: 1000 MG EACH IN THE MORNING AND EVENING
     Route: 048
     Dates: start: 20090507
  3. STEROID NOS [Suspect]
     Indication: DRUG USE FOR UNKNOWN INDICATION
     Dosage: FORM: PILL
     Route: 065

REACTIONS (6)
  - ADVERSE DRUG REACTION [None]
  - BLOOD GLUCOSE INCREASED [None]
  - ERYTHEMA [None]
  - NAUSEA [None]
  - PALPITATIONS [None]
  - VOMITING [None]
